FAERS Safety Report 24399447 (Version 1)
Quarter: 2024Q4

REPORT INFORMATION
  Report Type: Spontaneous
  Country: IT (occurrence: IT)
  Receive Date: 20241005
  Receipt Date: 20241005
  Transmission Date: 20250115
  Serious: Yes (Hospitalization)
  Sender: ROCHE
  Company Number: None

PATIENT
  Age: 66 Year
  Sex: Male

DRUGS (7)
  1. RITUXIMAB [Suspect]
     Active Substance: RITUXIMAB
     Indication: Diffuse large B-cell lymphoma
     Dosage: THREE CYCLES
     Route: 065
     Dates: start: 202105
  2. VINCRISTINE SULFATE [Suspect]
     Active Substance: VINCRISTINE SULFATE
     Indication: Diffuse large B-cell lymphoma
     Dosage: THREE CYCLES
     Route: 065
     Dates: start: 202105
  3. MIDOSTAURIN [Suspect]
     Active Substance: MIDOSTAURIN
     Indication: Systemic mastocytosis
     Dosage: 100 MG, BID
     Route: 065
     Dates: start: 201604, end: 202104
  4. PREDNISONE [Suspect]
     Active Substance: PREDNISONE
     Indication: Diffuse large B-cell lymphoma
     Dosage: THREE CYCLES
     Route: 065
     Dates: start: 202105
  5. CYCLOPHOSPHAMIDE [Suspect]
     Active Substance: CYCLOPHOSPHAMIDE
     Indication: Diffuse large B-cell lymphoma
     Dosage: THREE CYCLES
     Route: 065
     Dates: start: 201705
  6. DOXORUBICIN HYDROCHLORIDE [Suspect]
     Active Substance: DOXORUBICIN HYDROCHLORIDE
     Indication: Diffuse large B-cell lymphoma
     Dosage: THREE CYCLES
     Route: 065
     Dates: start: 202105
  7. IMATINIB [Suspect]
     Active Substance: IMATINIB
     Indication: Systemic mastocytosis
     Dosage: 400 MG, QD
     Route: 065
     Dates: start: 201602, end: 201603

REACTIONS (1)
  - Gastric haemorrhage [Unknown]
